FAERS Safety Report 5901496-6 (Version None)
Quarter: 2008Q3

REPORT INFORMATION
  Report Type: 
  Country: None (occurrence: None)
  Receive Date: 20080926
  Receipt Date: 20080926
  Transmission Date: 20090109
  Serious: Yes (Hospitalization)
  Sender: FDA-Public Use
  Company Number: None

PATIENT
  Age: 80 Year
  Sex: Male

DRUGS (1)
  1. PAXIL [Suspect]

REACTIONS (6)
  - CONFUSIONAL STATE [None]
  - HYPOTENSION [None]
  - HYPOVENTILATION [None]
  - LEUKOPENIA [None]
  - SEPSIS [None]
  - TACHYCARDIA [None]
